FAERS Safety Report 23234057 (Version 1)
Quarter: 2023Q4

REPORT INFORMATION
  Report Type: Spontaneous
  Country: FR (occurrence: FR)
  Receive Date: 20231128
  Receipt Date: 20231128
  Transmission Date: 20240110
  Serious: Yes (Death)
  Sender: FDA-Public Use
  Company Number: FR-STRIDES ARCOLAB LIMITED-2023SP017616

PATIENT

DRUGS (9)
  1. ETOPOSIDE [Suspect]
     Active Substance: ETOPOSIDE
     Indication: High-grade B-cell lymphoma
     Dosage: UNK, CYCLICAL, RECEIVED 2 CYCLES,AS PART OF CYVE REGIMEN
     Route: 065
  2. PREDNISOLONE [Suspect]
     Active Substance: PREDNISOLONE
     Indication: High-grade B-cell lymphoma
     Dosage: UNK, CYCLICAL,  RECEIVED 2 CYCLES, AS PART OF R-COPADM REGIMEN
     Route: 065
  3. DOXORUBICIN [Suspect]
     Active Substance: DOXORUBICIN
     Indication: High-grade B-cell lymphoma
     Dosage: UNK, CYCLICAL, RECEIVED 2 CYCLES,AS PART OF R-COPADM REGIMEN
     Route: 065
  4. METHOTREXATE [Suspect]
     Active Substance: METHOTREXATE
     Indication: High-grade B-cell lymphoma
     Dosage: UNK, CYCLICAL, RECEIVED 2 CYCLES, HIGH DOSE, AS PART OF R-COPADM REGIMEN
     Route: 065
  5. VINCRISTINE [Suspect]
     Active Substance: VINCRISTINE
     Indication: High-grade B-cell lymphoma
     Dosage: UNK, CYCLICAL, RECEIVED 2 CYCLES, AS A PART OF R-COPADM REGIMEN
     Route: 065
  6. CYCLOPHOSPHAMIDE [Suspect]
     Active Substance: CYCLOPHOSPHAMIDE
     Indication: High-grade B-cell lymphoma
     Dosage: UNK, CYCLICAL,RECEIVED 2 CYCLES, AS PART OF R-COPADM REGIMEN
     Route: 065
  7. CYTARABINE [Suspect]
     Active Substance: CYTARABINE
     Indication: High-grade B-cell lymphoma
     Dosage: UNK, CYCLICAL, RECEIVED 2 CYCLES, AS PART OF CYVE REGIMEN
     Route: 065
  8. METHYLPREDNISOLONE [Suspect]
     Active Substance: METHYLPREDNISOLONE
     Indication: High-grade B-cell lymphoma
     Dosage: UNK, CYCLICAL, RECEIVED 2 CYCLES,AS PART OF CYVE REGIMEN
     Route: 065
  9. RITUXIMAB [Suspect]
     Active Substance: RITUXIMAB
     Indication: High-grade B-cell lymphoma
     Dosage: UNK, CYCLICAL, RECEIVED 2 CYCLES,AS A PART OF R-COPADM REGIMEN
     Route: 065

REACTIONS (1)
  - Septic shock [Fatal]
